FAERS Safety Report 16811948 (Version 1)
Quarter: 2019Q3

REPORT INFORMATION
  Report Type: Spontaneous
  Country: GB (occurrence: GB)
  Receive Date: 20190916
  Receipt Date: 20190916
  Transmission Date: 20191005
  Serious: Yes (Other)
  Sender: FDA-Public Use
  Company Number: PHHY2019GB213737

PATIENT
  Age: 48 Year
  Sex: Female
  Weight: 86 kg

DRUGS (4)
  1. CEFTRIAXONE. [Suspect]
     Active Substance: CEFTRIAXONE
     Indication: CELLULITIS
     Dosage: 1 G, UNK
     Route: 042
  2. EVOREL [Concomitant]
     Indication: PRODUCT USED FOR UNKNOWN INDICATION
     Dosage: 2 DF, QW (APPLY)
     Route: 065
     Dates: start: 20190109
  3. ROZEX (METRONIDAZOLE) [Concomitant]
     Active Substance: METRONIDAZOLE
     Indication: PRODUCT USED FOR UNKNOWN INDICATION
     Dosage: 2 DF, QD (APPLY)
     Route: 065
     Dates: start: 20171205
  4. LEVOTHYROXINE. [Concomitant]
     Active Substance: LEVOTHYROXINE
     Indication: PRODUCT USED FOR UNKNOWN INDICATION
     Dosage: 1 DF, QD (EACH MORNING)
     Route: 065
     Dates: start: 20190510

REACTIONS (1)
  - Throat tightness [Recovered/Resolved]

NARRATIVE: CASE EVENT DATE: 20190810
